FAERS Safety Report 7308058-7 (Version None)
Quarter: 2011Q1

REPORT INFORMATION
  Report Type: 
  Country: None (occurrence: None)
  Receive Date: 20110223
  Receipt Date: 20101119
  Transmission Date: 20110831
  Serious: No
  Sender: FDA-Public Use
  Company Number: US-BAYER-2010-009147

PATIENT
  Sex: Female

DRUGS (1)
  1. MIRENA [Suspect]
     Dosage: 20 ?G/D, CONT
     Route: 015
     Dates: start: 20100701

REACTIONS (8)
  - DEVICE DISLOCATION [None]
  - DEPRESSED MOOD [None]
  - BURNING SENSATION [None]
  - VISION BLURRED [None]
  - DEPRESSION [None]
  - FATIGUE [None]
  - PARAESTHESIA [None]
  - HEADACHE [None]
